FAERS Safety Report 5051677-1 (Version None)
Quarter: 2006Q3

REPORT INFORMATION
  Report Type: 
  Country: None (occurrence: None)
  Receive Date: 20060711
  Receipt Date: 20060619
  Transmission Date: 20061208
  Serious: Yes (Other)
  Sender: FDA-Public Use
  Company Number: US200603004899

PATIENT
  Age: 43 Year
  Sex: Female
  Weight: 99.8 kg

DRUGS (8)
  1. CYMBALTA [Suspect]
     Indication: SEASONAL AFFECTIVE DISORDER
     Dosage: SEE IMAGE
     Dates: start: 20060131, end: 20060206
  2. CYMBALTA [Suspect]
     Indication: SEASONAL AFFECTIVE DISORDER
     Dosage: SEE IMAGE
     Dates: start: 20060207, end: 20060219
  3. LAMISIL [Concomitant]
  4. NAPROXEN [Concomitant]
  5. ULTRAM [Concomitant]
  6. DETROL - SLOW RELEASE (TOLTERODINE L-TARTRATE) [Concomitant]
  7. HYDROCHLOROTHIAZIDE [Concomitant]
  8. ASA (ASPIRIN (ACETYLSALICYLIC ACID) [Concomitant]

REACTIONS (6)
  - FEELING JITTERY [None]
  - FORMICATION [None]
  - INSOMNIA [None]
  - PARAESTHESIA [None]
  - RESTLESSNESS [None]
  - TREMOR [None]
